FAERS Safety Report 5575367-1 (Version None)
Quarter: 2007Q4

REPORT INFORMATION
  Report Type: 
  Country: None (occurrence: None)
  Receive Date: 20071221
  Receipt Date: 20071207
  Transmission Date: 20080405
  Serious: Yes (Death, Other)
  Sender: FDA-Public Use
  Company Number: MEDI-0006253

PATIENT
  Age: 4 Month
  Sex: Female
  Weight: 6.3504 kg

DRUGS (7)
  1. SYNAGIS [Suspect]
     Indication: ANTIVIRAL PROPHYLAXIS
     Dosage: 0.92 ML, INTRAMUSCULAR
     Route: 030
     Dates: start: 20071205, end: 20071205
  2. PREVNAR [Concomitant]
  3. DTP [Concomitant]
  4. DIGOXIN [Concomitant]
  5. ZANTAC 150 [Concomitant]
  6. ENALAPRIL MALEATE [Concomitant]
  7. ASPIRIN [Concomitant]

REACTIONS (2)
  - APNOEA [None]
  - VOMITING [None]
